APPROVED DRUG PRODUCT: ENTECAVIR
Active Ingredient: ENTECAVIR
Strength: 0.5MG
Dosage Form/Route: TABLET;ORAL
Application: A206745 | Product #001 | TE Code: AB
Applicant: ZYDUS PHARMACEUTICALS USA INC
Approved: Jun 23, 2017 | RLD: No | RS: No | Type: RX